FAERS Safety Report 6626108-8 (Version None)
Quarter: 2010Q1

REPORT INFORMATION
  Report Type: 
  Country: None (occurrence: None)
  Receive Date: 20100310
  Receipt Date: 20100303
  Transmission Date: 20100710
  Serious: Yes (Hospitalization)
  Sender: FDA-Public Use
  Company Number: B0629124A

PATIENT
  Sex: Female

DRUGS (3)
  1. RYTMONORM [Suspect]
     Dosage: 325MG TWICE PER DAY
     Route: 048
     Dates: start: 20091120, end: 20091124
  2. SIMVASTATIN [Concomitant]
     Route: 048
  3. CLEXANE [Concomitant]
     Route: 058

REACTIONS (3)
  - HEPATOTOXICITY [None]
  - PRURITUS [None]
  - URTICARIA [None]
